FAERS Safety Report 8353496-7 (Version None)
Quarter: 2012Q2

REPORT INFORMATION
  Report Type: 
  Country: None (occurrence: None)
  Receive Date: 20120511
  Receipt Date: 20110422
  Transmission Date: 20120825
  Serious: No
  Sender: FDA-Public Use
  Company Number: US-GLAXOSMITHKLINE-A0924229A

PATIENT
  Age: 72 Year
  Sex: Female

DRUGS (8)
  1. CYMBALTA [Concomitant]
  2. SPIRIVA [Concomitant]
  3. NEBULIZER [Concomitant]
  4. VERAPAMIL [Concomitant]
  5. SINGULAIR [Concomitant]
  6. TYKERB [Suspect]
     Indication: BRAIN NEOPLASM MALIGNANT
     Dosage: 5TAB PER DAY
     Route: 048
     Dates: start: 20100101
  7. CIPROFLOXACIN HCL [Concomitant]
  8. PREVACID [Concomitant]

REACTIONS (3)
  - PRODUCTIVE COUGH [None]
  - INSOMNIA [None]
  - DIARRHOEA [None]
